FAERS Safety Report 10457763 (Version 2)
Quarter: 2014Q3

REPORT INFORMATION
  Report Type: Spontaneous
  Country: US (occurrence: US)
  Receive Date: 20140916
  Receipt Date: 20140916
  Transmission Date: 20150326
  Serious: Yes (Hospitalization)
  Sender: FDA-Public Use
  Company Number: US-GLAXOSMITHKLINE-A0744563A

PATIENT
  Sex: Male
  Weight: 117.3 kg

DRUGS (6)
  1. AVANDIA [Suspect]
     Active Substance: ROSIGLITAZONE MALEATE
     Indication: TYPE 2 DIABETES MELLITUS
     Dosage: 2MG TWICE PER DAY
     Route: 048
     Dates: start: 200308, end: 2005
  2. LASIX [Concomitant]
     Active Substance: FUROSEMIDE
     Dosage: 40MG PER DAY
  3. ALTACE [Concomitant]
     Active Substance: RAMIPRIL
     Dosage: 10MG TWICE PER DAY
  4. CATAPRES [Concomitant]
     Active Substance: CLONIDINE HYDROCHLORIDE
     Dosage: .3MG THREE TIMES PER DAY
     Route: 048
  5. COREG [Concomitant]
     Active Substance: CARVEDILOL
     Indication: HYPERTENSION
     Dosage: 3.125MG TWICE PER DAY
     Route: 048
  6. KDUR [Concomitant]
     Dosage: 20MG PER DAY

REACTIONS (7)
  - Cardiomegaly [Unknown]
  - Coronary artery disease [Unknown]
  - Angina unstable [Unknown]
  - Chest pain [Unknown]
  - Pericardial effusion [Unknown]
  - Pleural effusion [Unknown]
  - Cardiac failure congestive [Unknown]
